FAERS Safety Report 6184509-9 (Version None)
Quarter: 2009Q2

REPORT INFORMATION
  Report Type: 
  Country: None (occurrence: None)
  Receive Date: 20090508
  Receipt Date: 20090506
  Transmission Date: 20091009
  Serious: No
  Sender: FDA-Public Use
  Company Number: US-B.I. PHARMACEUTICALS,INC./RIDGEFIELD-2009-BP-05702BP

PATIENT
  Sex: Female

DRUGS (1)
  1. ZANTAC [Suspect]
     Indication: GASTROOESOPHAGEAL REFLUX PROPHYLAXIS
     Dosage: 300MG
     Route: 048
     Dates: start: 20090505, end: 20090505

REACTIONS (1)
  - DYSPEPSIA [None]
